FAERS Safety Report 6105038-4 (Version None)
Quarter: 2009Q1

REPORT INFORMATION
  Report Type: 
  Country: None (occurrence: None)
  Receive Date: 20090306
  Receipt Date: 20090203
  Transmission Date: 20090719
  Serious: No
  Sender: FDA-Public Use
  Company Number: US-BAYER-200912820NA

PATIENT
  Age: 26 Year
  Sex: Female
  Weight: 62 kg

DRUGS (3)
  1. YAZ [Suspect]
     Indication: CONTRACEPTION
     Route: 048
     Dates: start: 20070101
  2. BROGON [Concomitant]
     Indication: BLOOD PROLACTIN INCREASED
  3. VITAMINS [Concomitant]

REACTIONS (1)
  - ABNORMAL WITHDRAWAL BLEEDING [None]
